FAERS Safety Report 7670752-6 (Version None)
Quarter: 2011Q3

REPORT INFORMATION
  Report Type: 
  Country: None (occurrence: None)
  Receive Date: 20110803
  Receipt Date: 20110719
  Transmission Date: 20111222
  Serious: Yes (Death, Life-Threatening, Hospitalization)
  Sender: FDA-Public Use
  Company Number: 2011MA009081

PATIENT
  Age: 40 Year
  Sex: Female

DRUGS (4)
  1. MIRTAZAPINE [Suspect]
     Indication: DEPRESSION
  2. VENLAFAXINE [Suspect]
     Indication: DEPRESSION
  3. QUETIAPINE FUMARATE [Suspect]
     Indication: DEPRESSION
  4. LAMOTRIGINE [Suspect]
     Indication: DEPRESSION

REACTIONS (16)
  - CARDIAC ARREST [None]
  - ASPERGILLUS TEST POSITIVE [None]
  - CANDIDA TEST POSITIVE [None]
  - WHITE BLOOD CELL COUNT DECREASED [None]
  - HAEMOGLOBIN DECREASED [None]
  - UNRESPONSIVE TO STIMULI [None]
  - ENTEROCOCCUS TEST POSITIVE [None]
  - GENERAL PHYSICAL HEALTH DETERIORATION [None]
  - HYPOTENSION [None]
  - ORAL CANDIDIASIS [None]
  - FEBRILE NEUTROPENIA [None]
  - PHARYNGITIS [None]
  - CONVULSION [None]
  - SEPTIC SHOCK [None]
  - CELLULITIS ORBITAL [None]
  - MULTI-ORGAN DISORDER [None]
